FAERS Safety Report 9908043 (Version 1)
Quarter: 2014Q1

REPORT INFORMATION
  Report Type: Spontaneous
  Country: US (occurrence: None)
  Receive Date: 20140214
  Receipt Date: 20140214
  Transmission Date: 20141002
  Serious: Yes (Other)
  Sender: FDA-Public Use
  Company Number: None

PATIENT
  Age: 67 Year
  Sex: Male

DRUGS (5)
  1. LAMOTRIGINE [Suspect]
     Route: 048
  2. THIAMINE [Concomitant]
  3. BENZTROPINE [Concomitant]
  4. DYHENHYDRAMINE [Concomitant]
  5. OLANZAPINE [Concomitant]

REACTIONS (1)
  - Rash [None]
